FAERS Safety Report 5807270-3 (Version None)
Quarter: 2008Q3

REPORT INFORMATION
  Report Type: 
  Country: None (occurrence: None)
  Receive Date: 20080711
  Receipt Date: 20080704
  Transmission Date: 20090109
  Serious: Yes (Life-Threatening, Hospitalization)
  Sender: FDA-Public Use
  Company Number: BG-AVENTIS-200816399GDDC

PATIENT
  Age: 7 Year
  Sex: Female

DRUGS (1)
  1. MINIRIN [Suspect]
     Route: 045

REACTIONS (2)
  - GALLBLADDER PERFORATION [None]
  - PERITONITIS [None]
